FAERS Safety Report 6499921-8 (Version None)
Quarter: 2009Q4

REPORT INFORMATION
  Report Type: 
  Country: None (occurrence: None)
  Receive Date: 20091214
  Receipt Date: 20091214
  Transmission Date: 20100525
  Serious: Yes (Life-Threatening)
  Sender: FDA-Public Use
  Company Number: None

PATIENT
  Age: 62 Year
  Sex: Male
  Weight: 131.5431 kg

DRUGS (1)
  1. WELCHOL [Suspect]
     Indication: HYPERCHOLESTEROLAEMIA
     Dosage: THREE TABLETS TWICE PER DAY PO
     Route: 048
     Dates: start: 20080901, end: 20081001

REACTIONS (12)
  - CONSTIPATION [None]
  - DIARRHOEA [None]
  - EATING DISORDER [None]
  - EXERCISE TOLERANCE DECREASED [None]
  - FAECAL VOMITING [None]
  - JOINT RANGE OF MOTION DECREASED [None]
  - MUSCULOSKELETAL PAIN [None]
  - NAUSEA [None]
  - NECK PAIN [None]
  - SICK RELATIVE [None]
  - STOOL ANALYSIS ABNORMAL [None]
  - WEIGHT INCREASED [None]
